FAERS Safety Report 6167465-9 (Version None)
Quarter: 2009Q2

REPORT INFORMATION
  Report Type: 
  Country: None (occurrence: None)
  Receive Date: 20090424
  Receipt Date: 20090413
  Transmission Date: 20091009
  Serious: Yes (Other)
  Sender: FDA-Public Use
  Company Number: US-PFIZER INC-2008002004

PATIENT
  Sex: Female

DRUGS (2)
  1. CHANTIX [Suspect]
  2. SPIRIVA [Suspect]
     Route: 055

REACTIONS (6)
  - ANAL HAEMORRHAGE [None]
  - CHEST PAIN [None]
  - GASTROOESOPHAGEAL REFLUX DISEASE [None]
  - MALAISE [None]
  - NICOTINE DEPENDENCE [None]
  - REGURGITATION [None]
